FAERS Safety Report 4743100-9 (Version None)
Quarter: 2005Q3

REPORT INFORMATION
  Report Type: 
  Country: None (occurrence: None)
  Receive Date: 20050811
  Receipt Date: 20050630
  Transmission Date: 20060218
  Serious: Yes (Hospitalization, Disabling)
  Sender: FDA-Public Use
  Company Number: US-MERCK-0507USA00161

PATIENT
  Age: 49 Year
  Sex: Female
  Weight: 59 kg

DRUGS (5)
  1. VIOXX [Suspect]
     Indication: ARTHRITIS
     Route: 048
     Dates: start: 20010320, end: 20031110
  2. SINGULAIR [Concomitant]
     Route: 065
  3. PREMARIN [Concomitant]
     Indication: HORMONE REPLACEMENT THERAPY
     Route: 065
     Dates: end: 20031109
  4. ZEBUTAL [Concomitant]
     Indication: MIGRAINE
     Route: 065
     Dates: end: 20031109
  5. DETROL [Concomitant]
     Route: 065
     Dates: end: 20031109

REACTIONS (11)
  - ACUTE MYOCARDIAL INFARCTION [None]
  - BLADDER DISORDER [None]
  - BUNDLE BRANCH BLOCK LEFT [None]
  - CHEST PAIN [None]
  - LIMB INJURY [None]
  - MUSCLE SPASMS [None]
  - NEPHROLITHIASIS [None]
  - PAIN IN EXTREMITY [None]
  - TENDONITIS [None]
  - VENTRICULAR TACHYCARDIA [None]
  - WHITE BLOOD CELL COUNT INCREASED [None]
